FAERS Safety Report 8893749 (Version 1)
Quarter: 2012Q4

REPORT INFORMATION
  Report Type: 
  Country: US (occurrence: US)
  Receive Date: 20121108
  Receipt Date: 20121108
  Transmission Date: 20130627
  Serious: No
  Sender: FDA-Public Use
  Company Number: US-PFIZER INC-2012276644

PATIENT
  Age: 37 Year
  Sex: Female

DRUGS (1)
  1. BOSULIF [Suspect]
     Indication: CHRONIC MYELOID LEUKEMIA WITHOUT MENTION OF REMISSION
     Dosage: 500 mg, 1x/day with food
     Dates: start: 20121031

REACTIONS (1)
  - Abdominal pain [Unknown]
